FAERS Safety Report 13426543 (Version 1)
Quarter: 2017Q2

REPORT INFORMATION
  Report Type: Spontaneous
  Country: SG (occurrence: SG)
  Receive Date: 20170411
  Receipt Date: 20170411
  Transmission Date: 20170830
  Serious: Yes (Hospitalization, Other)
  Sender: FDA-Public Use
  Company Number: SG-ALVOGEN-2017-ALVOGEN-091870

PATIENT
  Age: 55 Year
  Sex: Male

DRUGS (8)
  1. MIDAZOLAM [Interacting]
     Active Substance: MIDAZOLAM HYDROCHLORIDE
     Indication: SEDATION
     Route: 042
  2. FENTANYL. [Interacting]
     Active Substance: FENTANYL
     Indication: SEDATION
     Route: 042
  3. MIDAZOLAM [Interacting]
     Active Substance: MIDAZOLAM HYDROCHLORIDE
     Indication: SEDATION
     Route: 042
  4. FENTANYL. [Suspect]
     Active Substance: FENTANYL
     Indication: SEDATION
     Route: 042
  5. MIDAZOLAM [Interacting]
     Active Substance: MIDAZOLAM HYDROCHLORIDE
     Indication: SEDATION
     Route: 042
  6. LIDOCAINE. [Concomitant]
     Active Substance: LIDOCAINE
     Indication: PRODUCT USED FOR UNKNOWN INDICATION
     Dosage: 10 PERCENT SPRAY
     Route: 048
  7. FENTANYL. [Interacting]
     Active Substance: FENTANYL
     Indication: SEDATION
     Route: 042
  8. LIDOCAINE. [Concomitant]
     Active Substance: LIDOCAINE
     Indication: PRODUCT USED FOR UNKNOWN INDICATION
     Dosage: 10 PERCENT SPRAY
     Route: 045

REACTIONS (4)
  - Sinus bradycardia [Unknown]
  - Chest discomfort [Recovered/Resolved]
  - Apnoea [Recovered/Resolved]
  - Drug interaction [Unknown]
